FAERS Safety Report 12547982 (Version 1)
Quarter: 2016Q3

REPORT INFORMATION
  Report Type: Spontaneous
  Country: US (occurrence: None)
  Receive Date: 20160711
  Receipt Date: 20160711
  Transmission Date: 20161109
  Serious: No
  Sender: FDA-Public Use
  Company Number: None

PATIENT
  Age: 60 Year
  Sex: Male
  Weight: 81.65 kg

DRUGS (3)
  1. IBUPROFEN. [Concomitant]
     Active Substance: IBUPROFEN
  2. LOSINOPROL [Concomitant]
  3. HYDROCODON/ACETAMINOPHN [Suspect]
     Active Substance: ACETAMINOPHEN\HYDROCODONE
     Indication: PROCEDURAL PAIN
     Route: 048
     Dates: start: 20160706, end: 20160707

REACTIONS (6)
  - Abdominal distension [None]
  - Underdose [None]
  - Product contamination [None]
  - Flatulence [None]
  - Reaction to drug excipients [None]
  - Abdominal discomfort [None]

NARRATIVE: CASE EVENT DATE: 20160706
